FAERS Safety Report 8344086-0 (Version None)
Quarter: 2012Q2

REPORT INFORMATION
  Report Type: 
  Country: None (occurrence: None)
  Receive Date: 20120508
  Receipt Date: 20120501
  Transmission Date: 20120825
  Serious: Yes (Hospitalization)
  Sender: FDA-Public Use
  Company Number: DK-B.I. PHARMACEUTICALS,INC./RIDGEFIELD-2012-SW-00344DB

PATIENT
  Sex: Female
  Weight: 70 kg

DRUGS (4)
  1. POTASSIUM CHLORIDE [Concomitant]
  2. ZOLPIDEM TARTRATE [Concomitant]
     Dosage: PHARMACEUTICAL FORM: 82
  3. PRADAXA [Suspect]
     Indication: ATRIAL FIBRILLATION
     Dosage: PHARMACEUTICAL FORM: 6, DOSAGE TEXT: DOSIS 150MG X 2, STRENGTH: 150 MG
     Route: 048
     Dates: start: 20111205, end: 20120424
  4. SPIRIVA [Concomitant]
     Dosage: PHARMACEUTICAL FORM: 111

REACTIONS (3)
  - GASTRIC ULCER [None]
  - IRON DEFICIENCY ANAEMIA [None]
  - ABDOMINAL PAIN UPPER [None]
